FAERS Safety Report 12842011 (Version 1)
Quarter: 2016Q4

REPORT INFORMATION
  Report Type: Spontaneous
  Country: US (occurrence: US)
  Receive Date: 20161012
  Receipt Date: 20161012
  Transmission Date: 20170207
  Serious: No
  Sender: FDA-Public Use
  Company Number: US-BAXTER-2016BAX049735

PATIENT
  Sex: Female

DRUGS (1)
  1. DOPAMINE HYDROCHLORIDE AND DEXTROSE [Suspect]
     Active Substance: DOPAMINE HYDROCHLORIDE
     Indication: PRODUCT USED FOR UNKNOWN INDICATION
     Route: 040
     Dates: start: 20160920

REACTIONS (3)
  - Poor quality drug administered [Recovered/Resolved]
  - Device leakage [Recovered/Resolved]
  - Blood pressure increased [Unknown]

NARRATIVE: CASE EVENT DATE: 20160920
